FAERS Safety Report 4602745-7 (Version None)
Quarter: 2005Q1

REPORT INFORMATION
  Report Type: 
  Country: None (occurrence: None)
  Receive Date: 20050309
  Receipt Date: 20050304
  Transmission Date: 20050727
  Serious: Yes (Hospitalization)
  Sender: FDA-Public Use
  Company Number: US-MERCK-0503USA00758

PATIENT
  Age: 66 Year
  Sex: Female

DRUGS (8)
  1. ZOCOR [Suspect]
     Indication: BLOOD CHOLESTEROL INCREASED
     Route: 048
     Dates: end: 20050304
  2. [THERAPY UNSPECIFIED] [Concomitant]
     Indication: BLOOD PRESSURE ABNORMAL
     Route: 065
  3. LITHIUM SULFATE [Concomitant]
     Route: 065
  4. HYDRODIURIL [Concomitant]
     Route: 048
  5. KLONOPIN [Concomitant]
     Route: 065
  6. ZIAC [Concomitant]
     Route: 065
  7. PREVACID [Concomitant]
     Route: 065
  8. ULTRAM [Concomitant]
     Route: 065

REACTIONS (3)
  - CEREBELLAR SYNDROME [None]
  - DYSPHAGIA [None]
  - HIGH DENSITY LIPOPROTEIN DECREASED [None]
